FAERS Safety Report 7133093-1 (Version None)
Quarter: 2010Q4

REPORT INFORMATION
  Report Type: 
  Country: None (occurrence: None)
  Receive Date: 20101202
  Receipt Date: 20101125
  Transmission Date: 20110411
  Serious: Yes (Hospitalization)
  Sender: FDA-Public Use
  Company Number: B0686976A

PATIENT
  Age: 62 Year
  Sex: Male

DRUGS (1)
  1. AUGMENTIN [Suspect]
     Route: 048
     Dates: start: 20100712, end: 20100805

REACTIONS (2)
  - DIARRHOEA [None]
  - INCORRECT DRUG ADMINISTRATION DURATION [None]
